FAERS Safety Report 6536868-2 (Version None)
Quarter: 2010Q1

REPORT INFORMATION
  Report Type: 
  Country: None (occurrence: None)
  Receive Date: 20100107
  Receipt Date: 20091229
  Transmission Date: 20100710
  Serious: Yes (Other)
  Sender: FDA-Public Use
  Company Number: 1000011027

PATIENT
  Age: 71 Year
  Sex: Male
  Weight: 154.223 kg

DRUGS (15)
  1. SAVELLA [Suspect]
     Indication: FIBROMYALGIA
     Dosage: 25 MG (12.5 MG, 2 IN 1 D), ORAL
     Route: 048
     Dates: start: 20091203, end: 20091209
  2. HUMULIN R [Concomitant]
  3. LASIX [Concomitant]
  4. REGLAN [Concomitant]
  5. FLOMAX [Concomitant]
  6. LIPITOR [Concomitant]
  7. METOPROLOL [Concomitant]
  8. LOTENSIN [Concomitant]
  9. PREVACID [Concomitant]
  10. ASPIRIN [Concomitant]
  11. AMBIEN [Concomitant]
  12. OXYCODONE [Concomitant]
  13. FISH OIL [Concomitant]
  14. VITAMIN D [Concomitant]
  15. VITAMIN B-12 [Concomitant]

REACTIONS (1)
  - BLOOD GLUCOSE INCREASED [None]
